FAERS Safety Report 4883658-2 (Version None)
Quarter: 2006Q1

REPORT INFORMATION
  Report Type: 
  Country: None (occurrence: None)
  Receive Date: 20060113
  Receipt Date: 20051229
  Transmission Date: 20060701
  Serious: Yes (Other)
  Sender: FDA-Public Use
  Company Number: US200601000083

PATIENT
  Age: 66 Year
  Sex: Male

DRUGS (1)
  1. HUMULIN N [Suspect]
     Indication: DIABETES MELLITUS
     Dosage: 100 U, 2/D, SUBCUTANEOUS
     Route: 058

REACTIONS (6)
  - ARTHRITIS [None]
  - CARDIAC DISORDER [None]
  - INJECTION SITE MASS [None]
  - INJECTION SITE PAIN [None]
  - LIGAMENT INJURY [None]
  - MUSCLE ATROPHY [None]
